FAERS Safety Report 11169173 (Version 1)
Quarter: 2015Q2

REPORT INFORMATION
  Report Type: Spontaneous
  Country: US (occurrence: US)
  Receive Date: 20150605
  Receipt Date: 20150605
  Transmission Date: 20150821
  Serious: Yes (Other)
  Sender: FDA-Public Use
  Company Number: US-ASTRAZENECA-2015SE54522

PATIENT
  Age: 15 Month
  Sex: Male

DRUGS (1)
  1. NEXIUM 24HR [Suspect]
     Active Substance: ESOMEPRAZOLE MAGNESIUM
     Indication: GASTROOESOPHAGEAL REFLUX DISEASE
     Dosage: INSIDE CONTENTS OF HALF OF THE CAPSULE
     Route: 048
     Dates: start: 20150526

REACTIONS (4)
  - Condition aggravated [Recovered/Resolved]
  - Choking [Recovered/Resolved]
  - Gastrooesophageal reflux disease [Recovered/Resolved]
  - Intentional product misuse [Unknown]

NARRATIVE: CASE EVENT DATE: 20150526
